APPROVED DRUG PRODUCT: ZOLPIDEM TARTRATE
Active Ingredient: ZOLPIDEM TARTRATE
Strength: 5MG
Dosage Form/Route: TABLET;ORAL
Application: A078016 | Product #001
Applicant: MYLAN PHARMACEUTICALS INC
Approved: Apr 23, 2007 | RLD: No | RS: No | Type: DISCN